FAERS Safety Report 7487251-7 (Version None)
Quarter: 2011Q2

REPORT INFORMATION
  Report Type: 
  Country: None (occurrence: None)
  Receive Date: 20110518
  Receipt Date: 20110128
  Transmission Date: 20111010
  Serious: Yes (Other)
  Sender: FDA-Public Use
  Company Number: BR-BAYER-201017334LA

PATIENT
  Age: 26 Year
  Sex: Female

DRUGS (3)
  1. DIPIRONA [Concomitant]
     Indication: ORAL CONTRACEPTION
     Route: 048
  2. YASMIN [Suspect]
     Indication: MENSTRUAL CYCLE MANAGEMENT
     Dosage: 21D/4 OR 7D - YASMIN WAS RESTARTED AFTER END OF MENSES
     Route: 048
     Dates: start: 20091201, end: 20100722
  3. YASMIN [Suspect]
     Indication: CONTRACEPTION

REACTIONS (3)
  - PREGNANCY ON ORAL CONTRACEPTIVE [None]
  - AMENORRHOEA [None]
  - ABORTION [None]
